FAERS Safety Report 9214133 (Version 1)
Quarter: 2013Q2

REPORT INFORMATION
  Report Type: Spontaneous
  Country: US (occurrence: None)
  Receive Date: 20130404
  Receipt Date: 20130404
  Transmission Date: 20140414
  Serious: Yes (Life-Threatening, Hospitalization)
  Sender: FDA-Public Use
  Company Number: None

PATIENT
  Age: 89 Year
  Sex: Male
  Weight: 64.1 kg

DRUGS (1)
  1. SULFAMETHOXAZOLE/TRIMETHOPRIM [Suspect]
     Indication: URINARY TRACT INFECTION
     Dosage: 800MG/160MG TAB BID PO
     Route: 048
     Dates: start: 20130328, end: 20130329

REACTIONS (1)
  - Hepatitis acute [None]
